FAERS Safety Report 6838911-X (Version None)
Quarter: 2010Q3

REPORT INFORMATION
  Report Type: 
  Country: None (occurrence: None)
  Receive Date: 20100713
  Receipt Date: 20070808
  Transmission Date: 20110219
  Serious: No
  Sender: FDA-Public Use
  Company Number: US-PFIZER INC-2007045092

PATIENT
  Sex: Male
  Weight: 90.9 kg

DRUGS (2)
  1. CHANTIX [Suspect]
     Indication: SMOKING CESSATION THERAPY
     Route: 048
     Dates: start: 20070509, end: 20070521
  2. CHANTIX [Suspect]
     Indication: NICOTINE DEPENDENCE

REACTIONS (2)
  - INCONTINENCE [None]
  - URINARY RETENTION [None]
